FAERS Safety Report 18231708 (Version 1)
Quarter: 2020Q3

REPORT INFORMATION
  Report Type: Spontaneous
  Country: FR (occurrence: FR)
  Receive Date: 20200904
  Receipt Date: 20200904
  Transmission Date: 20201103
  Serious: Yes (Hospitalization)
  Sender: FDA-Public Use
  Company Number: FR-TEVA-2020-FR-1821973

PATIENT
  Age: 77 Year
  Sex: Male

DRUGS (5)
  1. TAZOCILLINE [Suspect]
     Active Substance: PIPERACILLIN SODIUM\TAZOBACTAM SODIUM
     Indication: PNEUMONIA
     Dosage: UNSPECIFIED
     Route: 041
     Dates: start: 20200401, end: 20200407
  2. AZITHROMYCINE [Suspect]
     Active Substance: AZITHROMYCIN
     Indication: CORONAVIRUS INFECTION
     Dosage: UNSPECIFIED
     Route: 048
     Dates: start: 202003, end: 20200401
  3. LINEZOLIDE [Suspect]
     Active Substance: LINEZOLID
     Indication: PNEUMONIA
     Dosage: UNSPECIFIED
     Route: 041
     Dates: start: 20200401, end: 20200415
  4. TIENAM [Suspect]
     Active Substance: CILASTATIN SODIUM\IMIPENEM
     Indication: PNEUMONIA
     Dosage: UNSPECIFIED
     Route: 041
     Dates: start: 20200407, end: 20200417
  5. PLAQUENIL [Suspect]
     Active Substance: HYDROXYCHLOROQUINE SULFATE
     Indication: CORONAVIRUS INFECTION
     Dosage: UNSPECIFIED
     Route: 048
     Dates: start: 202003, end: 20200407

REACTIONS (1)
  - Drug reaction with eosinophilia and systemic symptoms [Not Recovered/Not Resolved]

NARRATIVE: CASE EVENT DATE: 20200418
